FAERS Safety Report 19006140 (Version 1)
Quarter: 2021Q1

REPORT INFORMATION
  Report Type: Spontaneous
  Country: PK (occurrence: PK)
  Receive Date: 20210314
  Receipt Date: 20210314
  Transmission Date: 20210420
  Serious: Yes (Other)
  Sender: FDA-Public Use
  Company Number: PK-AMGEN-PAKSP2020010534

PATIENT
  Age: 66 Year
  Sex: Female

DRUGS (13)
  1. ENBREL [Suspect]
     Active Substance: ETANERCEPT
     Dosage: 50 MILLIGRAM, QWK
     Route: 058
     Dates: start: 20210213
  2. VITAMIN D3 [Concomitant]
     Active Substance: CHOLECALCIFEROL
     Dosage: 200,000, DRINK THIS INJECTION
  3. NIMS [Concomitant]
     Dosage: UNK, AS NEEDED
  4. ACLASTA [Concomitant]
     Active Substance: ZOLEDRONIC ACID
     Dosage: UNK
  5. ENBREL [Suspect]
     Active Substance: ETANERCEPT
     Indication: RHEUMATOID ARTHRITIS
     Dosage: 50 MILLIGRAM, Q2WK
     Route: 058
  6. FOLIC ACID. [Concomitant]
     Active Substance: FOLIC ACID
     Dosage: AFTER EVERY 2 MONTHS, TAKE 1 TABLET ON WEDNESDAY, THURSDAY AND FRIDAY
  7. SEROXAT [PAROXETINE HYDROCHLORIDE] [Concomitant]
     Active Substance: PAROXETINE HYDROCHLORIDE
     Dosage: 1 DOSAGE FORM, QD
  8. PLAQUENIL [Concomitant]
     Active Substance: HYDROXYCHLOROQUINE SULFATE
     Dosage: TAKE 1 IN NIGHT AFTER MEAL
  9. THYROXINE [Concomitant]
     Active Substance: LEVOTHYROXINE
     Dosage: UNK
  10. MAGNESIUM [Concomitant]
     Active Substance: MAGNESIUM
     Dosage: TAKE 1 DAILY FOR 3 MONTHS
  11. ENBREL [Suspect]
     Active Substance: ETANERCEPT
     Dosage: 50 MILLIGRAM, QWK
     Route: 058
     Dates: start: 20200520
  12. METHOTREXATE. [Concomitant]
     Active Substance: METHOTREXATE
     Dosage: UNK, 3 ON MONDAY 3 ON TUESDAY
  13. RIVOTRIL [Concomitant]
     Active Substance: CLONAZEPAM
     Dosage: 1 DOSAGE FORM, QD

REACTIONS (5)
  - Off label use [Unknown]
  - Osteoporosis [Unknown]
  - Arthralgia [Unknown]
  - Synovitis [Unknown]
  - Osteoarthritis [Unknown]
